FAERS Safety Report 13064735 (Version 2)
Quarter: 2016Q4

REPORT INFORMATION
  Report Type: Spontaneous
  Country: CH (occurrence: CH)
  Receive Date: 20161227
  Receipt Date: 20161227
  Transmission Date: 20170207
  Serious: Yes (Death, Other)
  Sender: FDA-Public Use
  Company Number: CH-PFIZER INC-2016579182

PATIENT
  Age: 69 Year
  Sex: Female
  Weight: 57 kg

DRUGS (44)
  1. FRAGMIN [Suspect]
     Active Substance: DALTEPARIN SODIUM
     Dosage: UNK UNK, QD
     Route: 058
     Dates: start: 20161118, end: 20161124
  2. DAFALGAN [Suspect]
     Active Substance: ACETAMINOPHEN
     Dosage: 1 G, UNK
     Route: 065
     Dates: start: 20161115, end: 20161116
  3. NOVALGIN [Concomitant]
     Active Substance: METAMIZOLE SODIUM
     Dosage: 40 GTT, 4X/DAY 40-40-40-40
  4. MERONEM [Concomitant]
     Active Substance: MEROPENEM
     Dosage: UNK
     Dates: start: 20161125, end: 20161125
  5. CIPROXIN [Suspect]
     Active Substance: CIPROFLOXACIN
     Dosage: UNK, BID
     Route: 065
     Dates: start: 20161124, end: 20161125
  6. MINOCIN AKNE [Suspect]
     Active Substance: MINOCYCLINE HYDROCHLORIDE
     Dosage: 50 MG, 2X/DAY 1-0-1-0
     Dates: start: 20161123, end: 20161124
  7. OXYNORM [Suspect]
     Active Substance: OXYCODONE HYDROCHLORIDE
     Dosage: 4 MG,   IF REQUIRED
     Dates: start: 20161114, end: 20161116
  8. COCAINE [Concomitant]
     Active Substance: COCAINE
     Dosage: UNK, 3X/DAY IF REQUIRED
     Route: 002
  9. TAVEGYL [Concomitant]
     Active Substance: CLEMASTINE FUMARATE
     Dosage: UNK
     Dates: start: 20161123, end: 20161123
  10. NOREPINEPHRINE [Concomitant]
     Active Substance: NOREPINEPHRINE\NOREPINEPHRINE BITARTRATE
     Dosage: UNK
     Dates: start: 20161125, end: 20161125
  11. NARCAN [Concomitant]
     Active Substance: NALOXONE HYDROCHLORIDE
     Dosage: UNK
     Dates: start: 20161125, end: 20161125
  12. ERBITUX [Suspect]
     Active Substance: CETUXIMAB
     Dosage: 400 MG, UNK
     Route: 041
     Dates: start: 20161123, end: 20161123
  13. MOVICOL [Concomitant]
     Active Substance: POLYETHYLENE GLYCOL 3350\POTASSIUM CHLORIDE\SODIUM BICARBONATE\SODIUM CHLORIDE
     Dosage: UNK, 1X1 DAILY IF REQUIRED
  14. PASPERTIN [Concomitant]
     Active Substance: METOCLOPRAMIDE HYDROCHLORIDE
     Dosage: UNK
  15. DALACIN /00166002/ [Concomitant]
     Active Substance: CLINDAMYCIN HYDROCHLORIDE
     Dosage: UNK
     Dates: start: 20161125, end: 20161125
  16. CIPROXIN [Suspect]
     Active Substance: CIPROFLOXACIN
     Dosage: 250 MG, 2X/DAY 1-0-1-0
     Dates: start: 20161124, end: 20161125
  17. OXYNORM [Suspect]
     Active Substance: OXYCODONE HYDROCHLORIDE
     Dosage: 5 MG, UNK
     Dates: start: 20161116, end: 20161116
  18. EXFORGE HCT [Concomitant]
     Active Substance: AMLODIPINE BESYLATE\HYDROCHLOROTHIAZIDE\VALSARTAN
     Dosage: 1X1 DAILY 1-0-0-0
     Dates: end: 20161012
  19. MEPHAMESON [Concomitant]
     Active Substance: DEXAMETHASONE
     Dosage: 8 MG, UNK
     Route: 042
     Dates: start: 20161123, end: 20161123
  20. GLUCOSE [Concomitant]
     Active Substance: DEXTROSE
     Dosage: UNK
     Dates: start: 20161125, end: 20161125
  21. OXYNORM [Suspect]
     Active Substance: OXYCODONE HYDROCHLORIDE
     Dosage: UNK
     Route: 065
  22. MAGNESIOCARD CITRON [Concomitant]
     Active Substance: MAGNESIUM ASPARTATE HYDROCHLORIDE
     Dosage: UNK, BID
  23. LAXOBERON [Concomitant]
     Active Substance: SODIUM PICOSULFATE
     Dosage: 20 GTT, 2X/DAY IF REQUIRED
     Dates: start: 20161114, end: 20161124
  24. LAXOBERON [Concomitant]
     Active Substance: SODIUM PICOSULFATE
     Dosage: UNK, BID
     Dates: start: 20161114, end: 20161124
  25. MEPHAMESON [Concomitant]
     Active Substance: DEXAMETHASONE
     Dosage: UNK
     Dates: start: 20161123, end: 20161123
  26. LIDORAL [Concomitant]
     Dosage: 400 MG, IF REQUIRED
  27. MINOCIN AKNE [Suspect]
     Active Substance: MINOCYCLINE HYDROCHLORIDE
     Dosage: UNK, BID
     Route: 065
     Dates: start: 20161123, end: 20161124
  28. ESOMEP [Suspect]
     Active Substance: ESOMEPRAZOLE
     Dosage: 40 MG, 1X/DAY 1-0-0-0
     Route: 048
     Dates: start: 20161117, end: 20161124
  29. OXYNORM [Suspect]
     Active Substance: OXYCODONE HYDROCHLORIDE
     Dosage: 7 MG, UNK
     Dates: start: 20161117, end: 20161124
  30. OXYNORM [Suspect]
     Active Substance: OXYCODONE HYDROCHLORIDE
     Dosage: 10 MG, UNK
     Dates: start: 20161125, end: 20161125
  31. BEPANTHEN [Concomitant]
     Active Substance: DEXPANTHENOL
     Dosage: 3X/DAY 1-1-1-0
     Route: 002
  32. PASPERTIN [Concomitant]
     Active Substance: METOCLOPRAMIDE HYDROCHLORIDE
     Dosage: 30 GTT, 4X/DAY IF REQUIRED
  33. TAVEGYL [Concomitant]
     Active Substance: CLEMASTINE FUMARATE
     Dosage: 2 MG, UNK
     Dates: start: 20161123, end: 20161123
  34. FRAGMIN [Suspect]
     Active Substance: DALTEPARIN SODIUM
     Dosage: 40 MG, QD
     Route: 065
     Dates: start: 20161115, end: 20161116
  35. ZOLPIDEM [Suspect]
     Active Substance: ZOLPIDEM\ZOLPIDEM TARTRATE
     Dosage: 5 MG, UNK
     Dates: start: 20161115, end: 20161124
  36. MAGNESIOCARD CITRON [Concomitant]
     Active Substance: MAGNESIUM ASPARTATE HYDROCHLORIDE
     Dosage: 10 MMOL, 2X/DAY 2-2-0-0
  37. NOVALGIN [Concomitant]
     Active Substance: METAMIZOLE SODIUM
     Dosage: UNK, QID
  38. DUROGESIC [Concomitant]
     Active Substance: FENTANYL
     Dosage: UNK, 1X/72 HOURS
     Route: 062
  39. TARGIN [Concomitant]
     Active Substance: NALOXONE HYDROCHLORIDE\OXYCODONE HYDROCHLORIDE
     Dosage: UNK, 20 MG/10 MG 1-0-1-0
     Dates: end: 20161115
  40. PANTOZOL [Suspect]
     Active Substance: PANTOPRAZOLE SODIUM
     Dosage: 40 MG, UNK 0-0-1-0
     Dates: start: 20161115, end: 20161116
  41. INVANZ [Suspect]
     Active Substance: ERTAPENEM SODIUM
     Dosage: 1000 MG, UNK
     Route: 065
     Dates: start: 20161115, end: 20161115
  42. ATENOLOL. [Concomitant]
     Active Substance: ATENOLOL
     Dosage: 100 MG, 1X/DAY 1-0-0-0
     Dates: end: 20161012
  43. LYRICA [Concomitant]
     Active Substance: PREGABALIN
     Dosage: 75 MG, 1X/DAY 0-0-1-0
     Dates: start: 20161123, end: 20161124
  44. VI-DE 3 [Concomitant]
     Active Substance: CHOLECALCIFEROL
     Dosage: 10 GTT, 1X/DAY
     Dates: start: 20161124, end: 20161124

REACTIONS (2)
  - Acute hepatic failure [Fatal]
  - Pneumonia [Unknown]

NARRATIVE: CASE EVENT DATE: 20161125
